FAERS Safety Report 10043611 (Version 1)
Quarter: 2014Q1

REPORT INFORMATION
  Report Type: Report from Study
  Country: CA (occurrence: CA)
  Receive Date: 20140328
  Receipt Date: 20140328
  Transmission Date: 20141002
  Serious: Yes (Other)
  Sender: FDA-Public Use
  Company Number: CA-JNJFOC-20140315017

PATIENT
  Age: 0 None
  Sex: 0

DRUGS (2)
  1. REMICADE [Suspect]
     Indication: RHEUMATOID ARTHRITIS
     Dosage: MOTHER^S DOSING
     Route: 064
     Dates: start: 20080317
  2. REMICADE [Suspect]
     Indication: CROHN^S DISEASE
     Dosage: MOTHER^S DOSING
     Route: 064
     Dates: start: 20080317

REACTIONS (4)
  - Hypotonia [Unknown]
  - Blood magnesium abnormal [Unknown]
  - Enzyme abnormality [Unknown]
  - Foetal exposure during pregnancy [Recovered/Resolved]
